FAERS Safety Report 4309665-6 (Version None)
Quarter: 2004Q1

REPORT INFORMATION
  Report Type: 
  Country: None (occurrence: None)
  Receive Date: 20040302
  Receipt Date: 20040220
  Transmission Date: 20041129
  Serious: Yes (Other)
  Sender: FDA-Public Use
  Company Number: US-JNJFOC-20040204901

PATIENT
  Age: 62 Year
  Sex: Male
  Weight: 88.4514 kg

DRUGS (11)
  1. REMICADE [Suspect]
     Indication: RHEUMATOID ARTHRITIS
     Dosage: INTRAVENOUS
     Route: 042
     Dates: start: 20001006
  2. FOLIC ACID [Concomitant]
  3. NEXIUM [Concomitant]
  4. ZYRTEC [Concomitant]
  5. CITRACAL (CALCIUM CITRATE) [Concomitant]
  6. DYAZIDE [Concomitant]
  7. HYDROCODONE/APAP (HYDROCODONE) [Concomitant]
  8. ALBUTEROL [Concomitant]
  9. METHOTREXATE [Concomitant]
  10. CELEBREX [Concomitant]
  11. MULTIVITAMIN (MULTIVITAMINS) [Concomitant]

REACTIONS (1)
  - SKIN CANCER [None]
